FAERS Safety Report 20534700 (Version 8)
Quarter: 2024Q1

REPORT INFORMATION
  Report Type: Spontaneous
  Country: US (occurrence: US)
  Receive Date: 20220302
  Receipt Date: 20240206
  Transmission Date: 20240410
  Serious: Yes (Hospitalization, Disabling, Other)
  Sender: FDA-Public Use
  Company Number: US-ORGANON-O2202USA002342

PATIENT
  Sex: Male

DRUGS (3)
  1. SINGULAIR [Suspect]
     Active Substance: MONTELUKAST SODIUM
     Indication: Asthma
     Dosage: 5 MG
     Route: 048
     Dates: start: 2005
  2. SINGULAIR [Suspect]
     Active Substance: MONTELUKAST SODIUM
     Indication: Hypersensitivity
     Dosage: 10 MG
     Route: 048
     Dates: end: 2010
  3. DEXTROMETHORPHAN [Suspect]
     Active Substance: DEXTROMETHORPHAN
     Indication: Emotional distress
     Dosage: 1 BOTTLE OF COUGH SYRUP
     Route: 048
     Dates: start: 20130928

REACTIONS (23)
  - Neuropsychological symptoms [Not Recovered/Not Resolved]
  - Intentional self-injury [Recovered/Resolved]
  - Suicide attempt [Unknown]
  - Major depression [Not Recovered/Not Resolved]
  - Renal transplant [Unknown]
  - Impulse-control disorder [Unknown]
  - Anxiety [Not Recovered/Not Resolved]
  - Suicidal ideation [Recovered/Resolved]
  - Aggression [Not Recovered/Not Resolved]
  - Hallucination, visual [Unknown]
  - Intentional overdose [Unknown]
  - Bipolar disorder [Unknown]
  - Intentional self-injury [Unknown]
  - Paranoia [Unknown]
  - Thinking abnormal [Unknown]
  - Impulsive behaviour [Unknown]
  - Social avoidant behaviour [Unknown]
  - Headache [Unknown]
  - Post-traumatic stress disorder [Unknown]
  - Apathy [Unknown]
  - Decreased appetite [Unknown]
  - Disturbance in attention [Unknown]
  - Asthenia [Unknown]

NARRATIVE: CASE EVENT DATE: 20050101
